FAERS Safety Report 18717157 (Version 2)
Quarter: 2021Q3

REPORT INFORMATION
  Report Type: Report from Study
  Country: CA (occurrence: CA)
  Receive Date: 20210108
  Receipt Date: 20210923
  Transmission Date: 20211014
  Serious: Yes (Other)
  Sender: FDA-Public Use
  Company Number: CA-PFIZER INC-2021005697

PATIENT
  Age: 46 Year
  Sex: Female

DRUGS (27)
  1. METHOTREXATE SODIUM. [Suspect]
     Active Substance: METHOTREXATE SODIUM
     Indication: DIARRHOEA
  2. DICLOFENAC [Concomitant]
     Active Substance: DICLOFENAC
     Dosage: 2 MG, 1X/DAY
     Route: 065
  3. MORPHINE [Concomitant]
     Active Substance: MORPHINE
     Route: 065
  4. METHOTREXATE SODIUM. [Suspect]
     Active Substance: METHOTREXATE SODIUM
     Indication: DIARRHOEA
  5. COSENTYX [Suspect]
     Active Substance: SECUKINUMAB
     Dosage: 300 MG, 1 EVERY 4 WEEKS
     Route: 058
  6. HYDROMORPHONE HYDROCHLORIDE. [Concomitant]
     Active Substance: HYDROMORPHONE HYDROCHLORIDE
     Dosage: 4 MG
     Route: 065
  7. MORPHINE [Concomitant]
     Active Substance: MORPHINE
     Route: 065
  8. METHOTREXATE SODIUM. [Suspect]
     Active Substance: METHOTREXATE SODIUM
     Indication: VOMITING
     Dosage: UNK
  9. COSENTYX [Suspect]
     Active Substance: SECUKINUMAB
     Dosage: 300 MG, MONTHLY
     Route: 058
  10. COSENTYX [Suspect]
     Active Substance: SECUKINUMAB
     Dosage: 150 MG, MONTHLY
     Route: 058
  11. GRAVOL [Concomitant]
     Active Substance: DIMENHYDRINATE
     Route: 065
  12. COSENTYX [Suspect]
     Active Substance: SECUKINUMAB
     Indication: ANKYLOSING SPONDYLITIS
     Dosage: 150 MG, MONTHLY
     Route: 058
  13. HYDROMORPH CONTIN [Concomitant]
     Active Substance: HYDROMORPHONE
     Dosage: 25 MG
     Route: 065
  14. HYDROMORPH CONTIN [Concomitant]
     Active Substance: HYDROMORPHONE
     Dosage: 25 MG, 1X/DAY
     Route: 065
  15. HYDROMORPHONE HYDROCHLORIDE. [Concomitant]
     Active Substance: HYDROMORPHONE HYDROCHLORIDE
     Dosage: 25 MG, 1X/DAY
     Route: 065
  16. ESOMEPRAZOLE MAGNESIUM TRIHYDRATE/NAPROXEN [Concomitant]
     Active Substance: ESOMEPRAZOLE MAGNESIUM\NAPROXEN
     Route: 048
  17. REMICADE [Concomitant]
     Active Substance: INFLIXIMAB
     Dosage: UNK
     Route: 065
  18. METHOTREXATE SODIUM. [Suspect]
     Active Substance: METHOTREXATE SODIUM
     Indication: NAUSEA
  19. METHOTREXATE SODIUM. [Suspect]
     Active Substance: METHOTREXATE SODIUM
     Indication: NAUSEA
     Dosage: UNK, WEEKLY
     Route: 065
  20. COSENTYX [Suspect]
     Active Substance: SECUKINUMAB
     Dosage: 300 MG, MONTHLY
     Route: 058
  21. PLAQUENIL [Concomitant]
     Active Substance: HYDROXYCHLOROQUINE SULFATE
     Indication: ANKYLOSING SPONDYLITIS
     Route: 048
  22. ENBREL [Concomitant]
     Active Substance: ETANERCEPT
     Route: 065
  23. METHOTREXATE SODIUM. [Suspect]
     Active Substance: METHOTREXATE SODIUM
     Indication: VOMITING
     Dosage: UNK, WEEKLY (1 EVERY 1 WEEKS)
     Route: 065
  24. COSENTYX [Suspect]
     Active Substance: SECUKINUMAB
     Dosage: 300 MG, 1 EVERY 4 WEEKS
     Route: 058
  25. GRAVOL [Concomitant]
     Active Substance: DIMENHYDRINATE
     Route: 065
  26. COSENTYX [Suspect]
     Active Substance: SECUKINUMAB
     Indication: ANKYLOSING SPONDYLITIS
     Dosage: 150 MG, MONTHLY
     Route: 058
  27. PLAQUENIL [Concomitant]
     Active Substance: HYDROXYCHLOROQUINE SULFATE
     Indication: ANKYLOSING SPONDYLITIS
     Route: 048

REACTIONS (24)
  - Fibromyalgia [Unknown]
  - Feeling hot [Recovered/Resolved]
  - Inappropriate schedule of product administration [Recovered/Resolved]
  - Pain [Recovered/Resolved]
  - Arthralgia [Unknown]
  - Joint range of motion decreased [Unknown]
  - Injection site pain [Recovered/Resolved]
  - Back pain [Unknown]
  - Joint swelling [Unknown]
  - Dysstasia [Recovered/Resolved]
  - Haemorrhage [Unknown]
  - Headache [Unknown]
  - Neck pain [Unknown]
  - Pericarditis [Unknown]
  - Peripheral swelling [Unknown]
  - Fungal infection [Recovered/Resolved]
  - Fatigue [Unknown]
  - Discomfort [Unknown]
  - Injury [Unknown]
  - Musculoskeletal stiffness [Unknown]
  - Drug intolerance [Recovered/Resolved]
  - Pollakiuria [Unknown]
  - Swelling [Unknown]
  - Erythema [Recovered/Resolved]
